FAERS Safety Report 8019533-4 (Version None)
Quarter: 2012Q1

REPORT INFORMATION
  Report Type: 
  Country: None (occurrence: None)
  Receive Date: 20120103
  Receipt Date: 20111230
  Transmission Date: 20120608
  Serious: Yes (Death)
  Sender: FDA-Public Use
  Company Number: PHEH2011US012367

PATIENT
  Sex: Male

DRUGS (1)
  1. EXJADE [Suspect]
     Indication: HAEMOCHROMATOSIS
     Dosage: 500 MG, QD
     Route: 048
     Dates: start: 20111001

REACTIONS (5)
  - WEIGHT INCREASED [None]
  - DEATH [None]
  - DIARRHOEA [None]
  - FLUID RETENTION [None]
  - ABDOMINAL DISTENSION [None]
